FAERS Safety Report 16192639 (Version 1)
Quarter: 2019Q2

REPORT INFORMATION
  Report Type: Spontaneous
  Country: US (occurrence: US)
  Receive Date: 20190412
  Receipt Date: 20190412
  Transmission Date: 20190711
  Serious: No
  Sender: FDA-Public Use
  Company Number: US-SA-2019SA101641

PATIENT
  Age: 64 Year
  Sex: Female

DRUGS (1)
  1. LANTUS SOLOSTAR [Suspect]
     Active Substance: INSULIN GLARGINE
     Indication: TYPE 2 DIABETES MELLITUS
     Dosage: 90 UNITS IN THE MORNING AS TWO DOSAGES OF 45 UNITS AND THEN TAKES ANOTHER 40 UNITS AT NIGHT TIME
     Route: 065

REACTIONS (4)
  - Inappropriate schedule of product administration [Unknown]
  - Device operational issue [Unknown]
  - Fatigue [Unknown]
  - Product dose omission [Unknown]
